FAERS Safety Report 4931622-7 (Version None)
Quarter: 2006Q1

REPORT INFORMATION
  Report Type: 
  Country: None (occurrence: None)
  Receive Date: 20060303
  Receipt Date: 20050829
  Transmission Date: 20060701
  Serious: No
  Sender: FDA-Public Use
  Company Number: US-BRISTOL-MYERS SQUIBB COMPANY-13093109

PATIENT
  Age: 58 Year
  Sex: Female
  Weight: 98 kg

DRUGS (4)
  1. ERBITUX [Suspect]
     Indication: COLON CANCER
     Dosage: INITIATED ON 16-MAY-2005.
     Route: 042
     Dates: start: 20050101, end: 20050101
  2. IRINOTECAN HCL [Concomitant]
     Indication: COLON CANCER
  3. CELEXA [Concomitant]
  4. WARFARIN [Concomitant]

REACTIONS (3)
  - NAIL DISORDER [None]
  - SKIN FISSURES [None]
  - SKIN HAEMORRHAGE [None]
